FAERS Safety Report 18405129 (Version 1)
Quarter: 2020Q4

REPORT INFORMATION
  Report Type: Spontaneous
  Country: US (occurrence: US)
  Receive Date: 20201020
  Receipt Date: 20201020
  Transmission Date: 20210114
  Serious: No
  Sender: FDA-Public Use
  Company Number: US-PFIZER INC-2020403637

PATIENT
  Age: 58 Year
  Sex: Female

DRUGS (8)
  1. GEMZAR [Concomitant]
     Active Substance: GEMCITABINE HYDROCHLORIDE
     Dosage: UNK
  2. IBRANCE [Suspect]
     Active Substance: PALBOCICLIB
     Indication: BREAST NEOPLASM
     Dosage: 125 MG, CYCLIC (HALF TABLET) (1 DAILY FOR 21 DAYS)
     Route: 048
     Dates: start: 20200910
  3. PROBIOTIC [BIFIDOBACTERIUM BIFIDUM;BIFIDOBACTERIUM LACTIS;BIFIDOBACTER [Concomitant]
     Dosage: UNK (100B CELL CAPSULE)
  4. CARBOPLATIN. [Concomitant]
     Active Substance: CARBOPLATIN
     Dosage: UNK (10MG/ML VIAL)
  5. GRANIX [Concomitant]
     Active Substance: TBO-FILGRASTIM
     Dosage: UNK
  6. KEYTRUDA [Concomitant]
     Active Substance: PEMBROLIZUMAB
     Dosage: UNK (100 MG/ 4 ML VIAL)
  7. FIBER [Concomitant]
     Active Substance: PSYLLIUM HUSK
     Dosage: UNK
  8. CLARITIN [Concomitant]
     Active Substance: LORATADINE
     Dosage: UNK

REACTIONS (3)
  - Fatigue [Unknown]
  - Wrong technique in product usage process [Unknown]
  - Anaemia [Unknown]
